FAERS Safety Report 24190351 (Version 1)
Quarter: 2024Q3

REPORT INFORMATION
  Report Type: Other
  Country: US (occurrence: US)
  Receive Date: 20240808
  Receipt Date: 20240808
  Transmission Date: 20241017
  Serious: Yes (Life-Threatening, Other)
  Sender: PRASCO
  Company Number: US-Prasco Laboratories-PRAS20241068

PATIENT
  Age: 14 Year
  Sex: Male

DRUGS (2)
  1. DEXAMETHASONE [Suspect]
     Active Substance: DEXAMETHASONE
     Indication: Graft versus host disease oral
     Dosage: 5 ML
     Route: 048
  2. DEXAMETHASONE [Suspect]
     Active Substance: DEXAMETHASONE
     Indication: B-cell type acute leukaemia
     Dosage: PULSES
     Route: 048

REACTIONS (5)
  - Adrenocortical insufficiency acute [Recovering/Resolving]
  - Secondary adrenocortical insufficiency [Recovering/Resolving]
  - Adrenal insufficiency [Recovered/Resolved]
  - Hypothalamic pituitary adrenal axis suppression [Unknown]
  - Hypotension [Recovering/Resolving]
